FAERS Safety Report 6526106-9 (Version None)
Quarter: 2009Q4

REPORT INFORMATION
  Report Type: 
  Country: None (occurrence: None)
  Receive Date: 20091222
  Receipt Date: 20091126
  Transmission Date: 20100525
  Serious: Yes (Hospitalization)
  Sender: FDA-Public Use
  Company Number: 2009AL007830

PATIENT
  Age: 49 Year
  Sex: Female

DRUGS (4)
  1. DIAZEPAM TAB [Suspect]
     Indication: DRUG USE FOR UNKNOWN INDICATION
     Dosage: 75 MG;X1;PO
     Route: 048
     Dates: start: 20091113, end: 20091113
  2. FLUOXETINE [Suspect]
     Indication: DRUG USE FOR UNKNOWN INDICATION
     Dosage: 20 MG;PO
     Route: 048
  3. LORAZEPAM [Suspect]
     Indication: DRUG USE FOR UNKNOWN INDICATION
     Dosage: 4 MG;X1
     Dates: start: 20091113, end: 20091113
  4. CYMBALTA [Concomitant]

REACTIONS (4)
  - COMPLETED SUICIDE [None]
  - FATIGUE [None]
  - INCORRECT DOSE ADMINISTERED [None]
  - SYNCOPE [None]
